FAERS Safety Report 7675839-X (Version None)
Quarter: 2011Q3

REPORT INFORMATION
  Report Type: 
  Country: None (occurrence: None)
  Receive Date: 20110810
  Receipt Date: 20110728
  Transmission Date: 20111222
  Serious: Yes (Hospitalization)
  Sender: FDA-Public Use
  Company Number: CH-MYLANLABS-2011S1015892

PATIENT
  Age: 7 Decade
  Sex: Female

DRUGS (6)
  1. OLMESARTAN MEDOXOMIL [Concomitant]
     Route: 065
  2. METOPROLOL TARTRATE [Concomitant]
     Route: 065
  3. CLOPIDOGREL [Concomitant]
     Route: 065
  4. GABAPENTIN [Concomitant]
     Route: 065
  5. METFORMIN HCL [Suspect]
     Dosage: 500 MG/DAY
     Route: 048
  6. SITAGLIPTIN [Concomitant]
     Dosage: 50 MG/DAY
     Route: 048

REACTIONS (1)
  - FAECAL INCONTINENCE [None]
